FAERS Safety Report 6100618-4 (Version None)
Quarter: 2009Q1

REPORT INFORMATION
  Report Type: 
  Country: None (occurrence: None)
  Receive Date: 20090303
  Receipt Date: 20090218
  Transmission Date: 20090719
  Serious: Yes (Hospitalization, Other)
  Sender: FDA-Public Use
  Company Number: JP-NOVOPROD-284272

PATIENT
  Age: 43 Year
  Sex: Male

DRUGS (3)
  1. NOVORAPID 30 MIX CHU FLEXPEN [Suspect]
     Dosage: 300 U, SINGLE
     Route: 058
  2. DEPAS [Concomitant]
     Dosage: 20 MG, QD
     Route: 048
  3. VEGETAMIN A [Concomitant]
     Dosage: 20 TAB, QD
     Route: 048

REACTIONS (7)
  - CARDIAC FAILURE CONGESTIVE [None]
  - CONGESTIVE CARDIOMYOPATHY [None]
  - GENERALISED OEDEMA [None]
  - HYPOGLYCAEMIC UNCONSCIOUSNESS [None]
  - HYPONATRAEMIA [None]
  - INTENTIONAL OVERDOSE [None]
  - SUICIDE ATTEMPT [None]
